FAERS Safety Report 4874401-1 (Version None)
Quarter: 2005Q4

REPORT INFORMATION
  Report Type: 
  Country: None (occurrence: None)
  Receive Date: 20051201
  Receipt Date: 20050810
  Transmission Date: 20060501
  Serious: No
  Sender: FDA-Public Use
  Company Number: 2005PV001055

PATIENT
  Age: 53 Year
  Sex: Female

DRUGS (20)
  1. BYETTA [Suspect]
     Indication: DIABETES MELLITUS NON-INSULIN-DEPENDENT
     Dosage: 5 MCG;BID;SC
     Route: 058
     Dates: start: 20050809
  2. ACTOS [Concomitant]
  3. NEXIUM [Concomitant]
  4. LASIX [Concomitant]
  5. LEVOTHYROXINE SODIUM [Concomitant]
  6. SPIRONOLACTONE [Concomitant]
  7. ASTELIN [Concomitant]
  8. ALBUTEROL [Concomitant]
  9. COREG [Concomitant]
  10. ADVAIR DISKUS 100/50 [Concomitant]
  11. MOBIC [Concomitant]
  12. PERCOCET [Concomitant]
  13. NEURONTIN [Concomitant]
  14. METHOCARBAMOL [Concomitant]
  15. LISINOPRIL [Concomitant]
  16. ZANAFLEX [Concomitant]
  17. FLEXERIL [Concomitant]
  18. OXYCONTIN [Concomitant]
  19. KLONOPIN [Concomitant]
  20. ASPIRIN [Concomitant]

REACTIONS (7)
  - ACCIDENTAL OVERDOSE [None]
  - DECREASED APPETITE [None]
  - DIZZINESS [None]
  - FEELING JITTERY [None]
  - HEADACHE [None]
  - INJECTION SITE BRUISING [None]
  - IRRITABILITY [None]
